APPROVED DRUG PRODUCT: TRAMADOL HYDROCHLORIDE
Active Ingredient: TRAMADOL HYDROCHLORIDE
Strength: 100MG
Dosage Form/Route: TABLET, EXTENDED RELEASE;ORAL
Application: A205257 | Product #001
Applicant: MYLAN PHARMACEUTICALS INC
Approved: Dec 22, 2015 | RLD: No | RS: No | Type: DISCN